FAERS Safety Report 19031829 (Version 1)
Quarter: 2021Q1

REPORT INFORMATION
  Report Type: Spontaneous
  Country: JP (occurrence: JP)
  Receive Date: 20210319
  Receipt Date: 20210319
  Transmission Date: 20210420
  Serious: Yes (Other)
  Sender: FDA-Public Use
  Company Number: JP-PFIZER INC-2021272743

PATIENT
  Age: 64 Year
  Sex: Female

DRUGS (1)
  1. CELECOX [Suspect]
     Active Substance: CELECOXIB
     Route: 048

REACTIONS (2)
  - Gastrointestinal candidiasis [Unknown]
  - Vulvovaginal candidiasis [Unknown]
